FAERS Safety Report 25229245 (Version 2)
Quarter: 2025Q2

REPORT INFORMATION
  Report Type: Spontaneous
  Country: US (occurrence: US)
  Receive Date: 20250423
  Receipt Date: 20250502
  Transmission Date: 20250716
  Serious: Yes (Hospitalization)
  Sender: TEVA
  Company Number: US-TEVA-VS-3323577

PATIENT
  Age: 59 Year
  Sex: Female

DRUGS (4)
  1. ARGATROBAN [Suspect]
     Active Substance: ARGATROBAN
     Indication: Anticoagulant therapy
     Route: 065
  2. ASPIRIN [Suspect]
     Active Substance: ASPIRIN
     Indication: Antiplatelet therapy
     Route: 065
  3. CLOPIDOGREL BISULFATE [Suspect]
     Active Substance: CLOPIDOGREL BISULFATE
     Indication: Antiplatelet therapy
     Route: 065
  4. HEPARIN [Suspect]
     Active Substance: HEPARIN SODIUM
     Indication: Anticoagulant therapy
     Route: 065

REACTIONS (8)
  - Renal vein thrombosis [Unknown]
  - Drug ineffective [Unknown]
  - Deep vein thrombosis [Unknown]
  - Pulmonary embolism [Unknown]
  - Pelvic venous thrombosis [Unknown]
  - Heparin-induced thrombocytopenia [Recovering/Resolving]
  - Vena cava thrombosis [Unknown]
  - Melaena [Unknown]
